FAERS Safety Report 8963868 (Version 2)
Quarter: 2013Q1

REPORT INFORMATION
  Report Type: Spontaneous
  Country: FR (occurrence: FR)
  Receive Date: 20121213
  Receipt Date: 20130121
  Transmission Date: 20140127
  Serious: Yes (Death, Life-Threatening, Other)
  Sender: FDA-Public Use
  Company Number: FR-JNJFOC-20121205527

PATIENT
  Age: 87 Year
  Sex: Female
  Weight: 58 kg

DRUGS (1)
  1. XARELTO [Suspect]
     Indication: PULMONARY EMBOLISM
     Route: 048
     Dates: start: 20121020, end: 20121115

REACTIONS (3)
  - Headache [Fatal]
  - Cerebral haematoma [Fatal]
  - Cerebral haemorrhage [Fatal]
